FAERS Safety Report 9442507 (Version 4)
Quarter: 2013Q4

REPORT INFORMATION
  Report Type: Spontaneous
  Country: JP (occurrence: JP)
  Receive Date: 20130806
  Receipt Date: 20131219
  Transmission Date: 20140711
  Serious: Yes (Life-Threatening, Hospitalization, Other)
  Sender: FDA-Public Use
  Company Number: JP-PFIZER INC-2013225341

PATIENT
  Age: 27 Year
  Sex: Female

DRUGS (2)
  1. AMLODIPINE BESILATE [Suspect]
     Dosage: 20 TABLETS OF 5 MG
     Route: 048
  2. BUFFERIN /JPN/ [Suspect]
     Dosage: 300 TABLET, UNK
     Route: 048

REACTIONS (6)
  - Overdose [Unknown]
  - Hyperventilation [Recovered/Resolved]
  - Tachycardia [Recovered/Resolved]
  - Vomiting [Recovered/Resolved]
  - Tinnitus [Recovered/Resolved]
  - Deafness [Recovered/Resolved]
